FAERS Safety Report 4987769-2 (Version None)
Quarter: 2006Q2

REPORT INFORMATION
  Report Type: 
  Country: None (occurrence: None)
  Receive Date: 20060426
  Receipt Date: 20060410
  Transmission Date: 20061013
  Serious: Yes (Other)
  Sender: FDA-Public Use
  Company Number: BR200604001655

PATIENT

DRUGS (1)
  1. ZYPREXA [Suspect]
     Dosage: 10 MG, EACH EVENING
     Route: 048
     Dates: start: 20020101

REACTIONS (2)
  - PULMONARY EMBOLISM [None]
  - THROMBOSIS [None]
